FAERS Safety Report 14193436 (Version 1)
Quarter: 2017Q4

REPORT INFORMATION
  Report Type: Spontaneous
  Country: US (occurrence: US)
  Receive Date: 20171115
  Receipt Date: 20171115
  Transmission Date: 20180321
  Serious: No
  Sender: FDA-Public Use
  Company Number: US-BAUSCH-BL-2017-002286

PATIENT
  Sex: Male
  Weight: 76.27 kg

DRUGS (1)
  1. XENAZINE [Suspect]
     Active Substance: TETRABENAZINE
     Indication: PRODUCT USED FOR UNKNOWN INDICATION
     Dates: start: 201508

REACTIONS (4)
  - Speech disorder [Unknown]
  - Condition aggravated [Unknown]
  - Dysphagia [Unknown]
  - Off label use [Unknown]
